FAERS Safety Report 17073109 (Version 1)
Quarter: 2019Q4

REPORT INFORMATION
  Report Type: Other
  Country: GB (occurrence: GB)
  Receive Date: 20191125
  Receipt Date: 20191125
  Transmission Date: 20200122
  Serious: Yes (Life-Threatening)
  Sender: FDA-Public Use
  Company Number: GB-CELLTRION INC.-2019GB026723

PATIENT

DRUGS (9)
  1. PREDNISOLONE. [Concomitant]
     Active Substance: PREDNISOLONE
     Dosage: 30 MG
  2. MESALAZINE [Concomitant]
     Active Substance: MESALAMINE
     Dosage: 4800 MG, QD
  3. INFLIXIMAB (UNKNOWN) [Suspect]
     Active Substance: INFLIXIMAB
     Indication: PROCTITIS
     Dosage: 15 ML, 450MG PRESCRIBED.
     Route: 042
     Dates: start: 20180605, end: 20180605
  4. NOVORAPID [Concomitant]
     Active Substance: INSULIN ASPART
  5. ATORVASTATIN [Concomitant]
     Active Substance: ATORVASTATIN
     Dosage: 20 MG
  6. LANTUS [Concomitant]
     Active Substance: INSULIN GLARGINE
  7. PENTASA [Concomitant]
     Active Substance: MESALAMINE
     Dosage: 2 G, QD
  8. RAMIPRIL. [Concomitant]
     Active Substance: RAMIPRIL
     Dosage: 5 MG
  9. OMEPRAZOLE. [Concomitant]
     Active Substance: OMEPRAZOLE
     Indication: GASTROOESOPHAGEAL REFLUX DISEASE
     Dosage: 20 MG

REACTIONS (3)
  - Product use in unapproved indication [Unknown]
  - Dyspnoea [Recovered/Resolved]
  - Erythema [Recovered/Resolved]

NARRATIVE: CASE EVENT DATE: 20180605
